FAERS Safety Report 7227131-5 (Version None)
Quarter: 2011Q1

REPORT INFORMATION
  Report Type: 
  Country: None (occurrence: None)
  Receive Date: 20110114
  Receipt Date: 20110110
  Transmission Date: 20110831
  Serious: Yes (Death)
  Sender: FDA-Public Use
  Company Number: US-PFIZER INC-2010170598

PATIENT
  Age: 68 Year
  Sex: Female
  Weight: 57.1 kg

DRUGS (16)
  1. ADVIL [Suspect]
     Indication: ANALGESIC THERAPY
     Dosage: 2 TABLETS PER DAY
     Route: 048
     Dates: start: 20101101, end: 20101210
  2. THEOPHYLLINE [Concomitant]
     Dosage: 20 MG, UNK
  3. NAPROXEN [Concomitant]
     Dosage: 500 MG, UNK
  4. FISH OIL [Concomitant]
  5. SERTRALINE [Concomitant]
     Dosage: 10 MG, UNK
  6. PIOGLITAZONE [Concomitant]
     Dosage: 30 MG, UNK
  7. SIMVASTATIN [Concomitant]
     Dosage: 80 MG, UNK
  8. ACETYLSALICYLIC ACID [Concomitant]
     Dosage: 81 MG, UNK
  9. ZYBAN [Concomitant]
  10. GLIPIZIDE [Concomitant]
     Dosage: 5 MG, UNK
  11. GABAPENTIN [Concomitant]
     Dosage: 300 MG, UNK
  12. TRAMADOL [Concomitant]
  13. METFORMIN [Concomitant]
  14. CHANTIX [Concomitant]
  15. WELLBUTRIN [Concomitant]
     Dosage: 15 MG, UNK
  16. PREVACID [Concomitant]
     Dosage: 300 MG, UNK

REACTIONS (2)
  - ACCIDENT [None]
  - DRUG INEFFECTIVE [None]
